FAERS Safety Report 8796596 (Version 1)
Quarter: 2012Q4

REPORT INFORMATION
  Report Type: 
  Country: GB (occurrence: GB)
  Receive Date: 20120919
  Receipt Date: 20120919
  Transmission Date: 20130627
  Serious: Yes (Hospitalization, Other)
  Sender: FDA-Public Use
  Company Number: GB-ABBOTT-12P-167-0979685-00

PATIENT
  Age: 32 Year
  Sex: Female
  Weight: 78 kg

DRUGS (2)
  1. HUMIRA [Suspect]
     Indication: ARTHRITIS
     Route: 058
     Dates: start: 20100501, end: 20120501
  2. METHOTREXATE [Suspect]
     Indication: ARTHRITIS
     Route: 048
     Dates: start: 20091101, end: 20120501

REACTIONS (4)
  - Pyrexia [Unknown]
  - Pulmonary tuberculosis [Recovering/Resolving]
  - Hyperhidrosis [Unknown]
  - Cough [Unknown]
